FAERS Safety Report 5482637-4 (Version None)
Quarter: 2007Q4

REPORT INFORMATION
  Report Type: 
  Country: None (occurrence: None)
  Receive Date: 20071011
  Receipt Date: 20070830
  Transmission Date: 20080405
  Serious: No
  Sender: FDA-Public Use
  Company Number: A0677794A

PATIENT
  Age: 65 Year
  Sex: Female

DRUGS (8)
  1. TYKERB [Suspect]
     Indication: BREAST CANCER
     Dosage: 2500MG PER DAY
     Route: 048
     Dates: start: 20070630
  2. LISINOPRIL [Concomitant]
  3. EFFEXOR [Concomitant]
  4. OXYCODONE HCL [Concomitant]
  5. ATIVAN [Concomitant]
  6. METOPROLOL TARTRATE [Concomitant]
  7. VITAMIN [Concomitant]
  8. ZOMETA [Concomitant]

REACTIONS (7)
  - AMNESIA [None]
  - ASTHENIA [None]
  - DIZZINESS [None]
  - DYSPHAGIA [None]
  - HYPERSOMNIA [None]
  - PHARMACEUTICAL PRODUCT COMPLAINT [None]
  - WEIGHT DECREASED [None]
